FAERS Safety Report 9871849 (Version 2)
Quarter: 2014Q1

REPORT INFORMATION
  Report Type: Spontaneous
  Country: US (occurrence: US)
  Receive Date: 20140205
  Receipt Date: 20140205
  Transmission Date: 20141002
  Serious: Yes (Hospitalization)
  Sender: FDA-Public Use
  Company Number: US-B.I. PHARMACEUTICALS,INC./RIDGEFIELD-2013-BI-22432BP

PATIENT
  Age: 66 Year
  Sex: Male
  Weight: 108.86 kg

DRUGS (22)
  1. PRADAXA [Suspect]
     Indication: ATRIAL FIBRILLATION
     Dosage: 300 MG
     Route: 048
     Dates: start: 20110430, end: 20120512
  2. CITALOPRAM [Concomitant]
     Dosage: 40 MG
  3. DILTIAZEM [Concomitant]
     Dosage: 240 MG
  4. KEPPRA [Concomitant]
     Dosage: 1500 MG
  5. LISINOPRIL [Concomitant]
     Dosage: 40 MG
  6. SIMVASTATIN [Concomitant]
     Dosage: 10 MG
  7. ASA [Concomitant]
     Dosage: 81 MG
  8. SENNOSIDES [Concomitant]
  9. POTASSIUM [Concomitant]
     Dosage: 10 MEQ
  10. BENADRYL [Concomitant]
     Dosage: 25 MG
  11. CENTRUM SILVER [Concomitant]
  12. VITAMIN C [Concomitant]
     Dosage: 1000 MG
  13. ALPHA LIPOIC ACID [Concomitant]
     Dosage: 400 MG
  14. BATH CETAPHIL [Concomitant]
  15. CLODERM CREAM [Concomitant]
  16. TRIAMCINOLONE [Concomitant]
  17. TYLENOL [Concomitant]
  18. NASONEX [Concomitant]
  19. OLOPATADINE [Concomitant]
  20. METFORMIN [Concomitant]
     Dosage: 1000 MG
  21. ACTOS [Concomitant]
     Dosage: 15 MG
  22. PROTONIX [Concomitant]
     Dosage: 40 MG

REACTIONS (2)
  - Lower gastrointestinal haemorrhage [Recovered/Resolved]
  - Coagulopathy [Unknown]
